FAERS Safety Report 7204730 (Version 2)
Quarter: 2018Q4

REPORT INFORMATION
  Report Type: Spontaneous
  Country: JP (occurrence: JP)
  Receive Date: 20091208
  Receipt Date: 20181218
  Transmission Date: 20190205
  Serious: Yes (Hospitalization)
  Sender: FDA-Public Use
  Company Number: PHHY2007JP01348

PATIENT
  Sex: Male
  Weight: 2.56 kg

DRUGS (6)
  1. GLIVEC [Suspect]
     Active Substance: IMATINIB MESYLATE
     Indication: CHRONIC MYELOID LEUKAEMIA
     Dosage: 400 MG/DAY (THE DOSE GIVEN TO THE MOTHER)
     Route: 064
     Dates: start: 20020618, end: 20061104
  2. GLIVEC [Suspect]
     Active Substance: IMATINIB MESYLATE
     Dosage: 200 MG/DAY (THE DOSE GIVEN TO THE MOTHER)
     Route: 064
     Dates: start: 20070615, end: 20070727
  3. DAIO-KANZO-TO [Concomitant]
     Indication: CONSTIPATION
     Dosage: 2.5 G, TID
     Route: 048
     Dates: start: 19960326, end: 20061104
  4. GLIVEC [Suspect]
     Active Substance: IMATINIB MESYLATE
     Dosage: 400 MG/DAY (THE DOSE GIVEN TO THE MOTHER)
     Route: 064
     Dates: start: 20070728
  5. UTEMERIN [Concomitant]
     Active Substance: RITODRINE
     Indication: PRODUCT USED FOR UNKNOWN INDICATION
     Dosage: UNK
     Route: 065
  6. SELBEX [Concomitant]
     Active Substance: TEPRENONE
     Indication: GASTRITIS
     Dosage: 50 G, TID
     Route: 048
     Dates: start: 19960213, end: 20011104

REACTIONS (2)
  - Premature baby [Unknown]
  - Foetal exposure during pregnancy [Unknown]
